FAERS Safety Report 15967709 (Version 1)
Quarter: 2019Q1

REPORT INFORMATION
  Report Type: Spontaneous
  Country: US (occurrence: US)
  Receive Date: 20190215
  Receipt Date: 20190215
  Transmission Date: 20190418
  Serious: Yes (Other)
  Sender: FDA-Public Use
  Company Number: None

PATIENT
  Age: 47 Year
  Sex: Male

DRUGS (1)
  1. BUPRENORPHINE/NALOXONE, 8-2 MG/MG [Suspect]
     Active Substance: BUPRENORPHINE HYDROCHLORIDE\NALOXONE HYDROCHLORIDE
     Indication: DRUG DEPENDENCE
     Route: 048

REACTIONS (4)
  - Nausea [None]
  - Drug ineffective [None]
  - Vomiting [None]
  - Dyspepsia [None]

NARRATIVE: CASE EVENT DATE: 20190214
